FAERS Safety Report 6140551-5 (Version None)
Quarter: 2009Q2

REPORT INFORMATION
  Report Type: 
  Country: None (occurrence: None)
  Receive Date: 20090402
  Receipt Date: 20090327
  Transmission Date: 20091009
  Serious: Yes (Hospitalization, Other)
  Sender: FDA-Public Use
  Company Number: US-RANBAXY-2009US-22924

PATIENT

DRUGS (3)
  1. CLINDAMYCIN HYDROCHLORIDE [Suspect]
     Indication: INFECTION
     Dosage: 300 MG, TID
     Route: 048
     Dates: start: 20081226, end: 20090104
  2. ATENOLOL [Concomitant]
     Indication: DRUG USE FOR UNKNOWN INDICATION
     Dosage: 25 MG, QD
     Route: 065
  3. ALDACTAZIDE [Concomitant]
     Indication: DRUG USE FOR UNKNOWN INDICATION
     Dosage: 2525 MG, QD
     Route: 065

REACTIONS (4)
  - CLOSTRIDIAL INFECTION [None]
  - COLITIS [None]
  - COLON OPERATION [None]
  - INFLUENZA LIKE ILLNESS [None]
